FAERS Safety Report 8942632 (Version 2)
Quarter: 2012Q4

REPORT INFORMATION
  Report Type: 
  Country: DE (occurrence: DE)
  Receive Date: 20121204
  Receipt Date: 20121220
  Transmission Date: 20130627
  Serious: Yes (Life-Threatening, Hospitalization)
  Sender: FDA-Public Use
  Company Number: DE-BAYER-2012-125776

PATIENT
  Age: 45 Year
  Sex: Female
  Weight: 70 kg

DRUGS (1)
  1. MIRENA [Suspect]
     Dosage: 20 mcg/24hr, CONT
     Route: 015
     Dates: end: 2012

REACTIONS (2)
  - Basal ganglia infarction [Recovered/Resolved]
  - Cerebral artery occlusion [Recovered/Resolved]
